FAERS Safety Report 22029606 (Version 1)
Quarter: 2023Q1

REPORT INFORMATION
  Report Type: Spontaneous
  Country: US (occurrence: None)
  Receive Date: 20230221
  Receipt Date: 20230221
  Transmission Date: 20230417
  Serious: No
  Sender: FDA-Public Use
  Company Number: None

PATIENT
  Sex: 0

DRUGS (1)
  1. ZYPREXA [Suspect]
     Active Substance: OLANZAPINE

REACTIONS (1)
  - Psychotic disorder [None]
